FAERS Safety Report 21641381 (Version 2)
Quarter: 2022Q4

REPORT INFORMATION
  Report Type: Report from Study
  Country: US (occurrence: US)
  Receive Date: 20221125
  Receipt Date: 20221226
  Transmission Date: 20230113
  Serious: Yes (Hospitalization)
  Sender: FDA-Public Use
  Company Number: US-ABBVIE-4212955

PATIENT
  Sex: Male

DRUGS (1)
  1. HUMIRA [Suspect]
     Active Substance: ADALIMUMAB
     Indication: Crohn^s disease
     Dosage: CITRATE FREE,?FORM STRENGTH: 40 MG
     Route: 058

REACTIONS (6)
  - Weight decreased [Unknown]
  - Hypoaesthesia [Unknown]
  - Drug ineffective [Not Recovered/Not Resolved]
  - Abdominal pain [Unknown]
  - Unevaluable event [Recovering/Resolving]
  - Hypophagia [Unknown]
